FAERS Safety Report 11269910 (Version 1)
Quarter: 2015Q3

REPORT INFORMATION
  Report Type: Spontaneous
  Country: US (occurrence: None)
  Receive Date: 20150713
  Receipt Date: 20150713
  Transmission Date: 20151125
  Serious: Yes (Other)
  Sender: FDA-Public Use
  Company Number: None

PATIENT
  Age: 46 Year
  Sex: Female

DRUGS (1)
  1. CIPRO [Suspect]
     Active Substance: CIPROFLOXACIN HYDROCHLORIDE
     Indication: URINARY TRACT INFECTION
     Dosage: 1 PILL
     Route: 048
     Dates: start: 20150629, end: 20150702

REACTIONS (2)
  - Tendonitis [None]
  - Gait disturbance [None]

NARRATIVE: CASE EVENT DATE: 20150625
